FAERS Safety Report 5309317-X (Version None)
Quarter: 2007Q2

REPORT INFORMATION
  Report Type: 
  Country: None (occurrence: None)
  Receive Date: 20070425
  Receipt Date: 20070425
  Transmission Date: 20071010
  Serious: Yes (Life-Threatening, Hospitalization, Other)
  Sender: FDA-Public Use
  Company Number: None

PATIENT
  Sex: Male
  Weight: 95.2554 kg

DRUGS (1)
  1. CIPROFLOXACIN [Suspect]
     Indication: INFLUENZA
     Dosage: 1 TABLET EVERY 12 HRS FOR 10 DAYS
     Dates: start: 20061115, end: 20061120

REACTIONS (1)
  - HEPATITIS [None]
